FAERS Safety Report 11537001 (Version 1)
Quarter: 2015Q3

REPORT INFORMATION
  Report Type: Spontaneous
  Country: GB (occurrence: GB)
  Receive Date: 20150922
  Receipt Date: 20150922
  Transmission Date: 20151125
  Serious: Yes (Hospitalization, Other)
  Sender: FDA-Public Use
  Company Number: GB-ALEXION PHARMACEUTICALS INC-A201503567

PATIENT

DRUGS (2)
  1. SOLIRIS [Suspect]
     Active Substance: ECULIZUMAB
     Indication: AUTOIMMUNE DISORDER
  2. SOLIRIS [Suspect]
     Active Substance: ECULIZUMAB
     Indication: VITAMIN B12 DEFICIENCY
     Route: 042

REACTIONS (1)
  - Multi-organ failure [Not Recovered/Not Resolved]
